FAERS Safety Report 22905278 (Version 5)
Quarter: 2024Q1

REPORT INFORMATION
  Report Type: Report from Study
  Country: JP (occurrence: None)
  Receive Date: 20230905
  Receipt Date: 20240305
  Transmission Date: 20240410
  Serious: Yes (Hospitalization, Other)
  Sender: FDA-Public Use
  Company Number: 2023A199311

PATIENT
  Age: 62 Year
  Sex: Male
  Weight: 58 kg

DRUGS (13)
  1. CALQUENCE [Suspect]
     Active Substance: ACALABRUTINIB
     Indication: Chronic lymphocytic leukaemia
     Route: 048
     Dates: start: 20230405, end: 20230711
  2. CALQUENCE [Suspect]
     Active Substance: ACALABRUTINIB
     Indication: Chronic lymphocytic leukaemia
     Route: 048
     Dates: start: 20231003
  3. GAZYVA [Concomitant]
     Active Substance: OBINUTUZUMAB
     Dosage: 100.0MG UNKNOWN
     Dates: start: 20230510
  4. GAZYVA [Concomitant]
     Active Substance: OBINUTUZUMAB
     Dosage: 900.0MG UNKNOWN
     Dates: start: 20230512
  5. GAZYVA [Concomitant]
     Active Substance: OBINUTUZUMAB
     Dosage: 1000.0MG UNKNOWN
     Dates: start: 20230519
  6. SULFAMETHOXAZOLE\TRIMETHOPRIM [Concomitant]
     Active Substance: SULFAMETHOXAZOLE\TRIMETHOPRIM
     Indication: Infection prophylaxis
     Route: 048
     Dates: start: 20230410
  7. ACYCLOVIR [Concomitant]
     Active Substance: ACYCLOVIR
     Indication: Infection prophylaxis
     Route: 048
     Dates: start: 20230410
  8. FAMOTIDINE [Concomitant]
     Active Substance: FAMOTIDINE
     Indication: Prophylaxis
     Route: 048
     Dates: start: 20230405
  9. ISCOTIN [Concomitant]
     Active Substance: ISONIAZID
     Indication: Infection prophylaxis
     Route: 048
     Dates: start: 20230405
  10. NIFEDIPINE [Concomitant]
     Active Substance: NIFEDIPINE
     Indication: Infection prophylaxis
     Route: 048
  11. DUTASTERIDE [Concomitant]
     Active Substance: DUTASTERIDE
     Route: 048
  12. NAFTOPIDIL [Concomitant]
     Active Substance: NAFTOPIDIL
     Route: 048
  13. LORAZEPAM [Concomitant]
     Active Substance: LORAZEPAM
     Route: 048

REACTIONS (7)
  - Atrial fibrillation [Recovered/Resolved]
  - COVID-19 [Recovered/Resolved]
  - Pyrexia [Recovered/Resolved]
  - Weight increased [Unknown]
  - Injection related reaction [Recovered/Resolved]
  - Supraventricular extrasystoles [Recovered/Resolved]
  - Constipation [Recovered/Resolved]

NARRATIVE: CASE EVENT DATE: 20230101
